FAERS Safety Report 8917995 (Version 1)
Quarter: 2012Q4

REPORT INFORMATION
  Report Type: 
  Country: US (occurrence: US)
  Receive Date: 20121120
  Receipt Date: 20121120
  Transmission Date: 20130627
  Serious: No
  Sender: FDA-Public Use
  Company Number: US-ASTRAZENECA-2012SE16549

PATIENT
  Age: 50 Year
  Sex: Female
  Weight: 43.1 kg

DRUGS (1)
  1. NEXIUM [Suspect]
     Indication: GASTROOESOPHAGEAL REFLUX DISEASE
     Dosage: ON AND OFF EVERY 2 TO 3 MONTHS, SWITCHES BETWEEN DOSES OF 20MG AND 40MG
     Route: 048
     Dates: start: 2011

REACTIONS (2)
  - Abdominal discomfort [Not Recovered/Not Resolved]
  - Inappropriate schedule of drug administration [Unknown]
